FAERS Safety Report 18910414 (Version 1)
Quarter: 2021Q1

REPORT INFORMATION
  Report Type: Spontaneous
  Country: US (occurrence: US)
  Receive Date: 20210218
  Receipt Date: 20210218
  Transmission Date: 20210420
  Serious: No
  Sender: FDA-Public Use
  Company Number: None

PATIENT
  Age: 62 Year
  Sex: Male
  Weight: 78.47 kg

DRUGS (8)
  1. MEDICAL MARIJUANA [Concomitant]
     Active Substance: CANNABIS SATIVA SUBSP. INDICA TOP
  2. PRILOSEC [Concomitant]
     Active Substance: OMEPRAZOLE MAGNESIUM
  3. BRAFTOVI [Suspect]
     Active Substance: ENCORAFENIB
     Indication: COLON CANCER
     Route: 048
     Dates: start: 20200901
  4. ZYRTEC [Concomitant]
     Active Substance: CETIRIZINE HYDROCHLORIDE
  5. LOMOTIL [Concomitant]
     Active Substance: ATROPINE SULFATE\DIPHENOXYLATE HYDROCHLORIDE
  6. DOXYCYCLINE HYCLATE. [Concomitant]
     Active Substance: DOXYCYCLINE HYCLATE
  7. FENOFIBRATE. [Concomitant]
     Active Substance: FENOFIBRATE
  8. LORAZEPAM. [Concomitant]
     Active Substance: LORAZEPAM

REACTIONS (3)
  - Arthralgia [None]
  - Myalgia [None]
  - Arthritis [None]

NARRATIVE: CASE EVENT DATE: 20210218
